FAERS Safety Report 22227879 (Version 1)
Quarter: 2023Q2

REPORT INFORMATION
  Report Type: Spontaneous
  Country: US (occurrence: US)
  Receive Date: 20230419
  Receipt Date: 20230419
  Transmission Date: 20230722
  Serious: Yes (Hospitalization)
  Sender: FDA-Public Use
  Company Number: None

PATIENT
  Age: 59 Year
  Sex: Female

DRUGS (4)
  1. ALBUTEROL SULFATE [Suspect]
     Active Substance: ALBUTEROL SULFATE
     Indication: Pulmonary arterial hypertension
     Dosage: UNKNOWN
  2. DILTIAZEM [Suspect]
     Active Substance: DILTIAZEM
     Indication: Pulmonary arterial hypertension
     Dosage: UNKNOWN
  3. INSULIN NOS [Suspect]
     Active Substance: INSULIN NOS
     Indication: Hyperglycaemia
     Dosage: UNKNOWN
  4. METOPROLOL [Suspect]
     Active Substance: METOPROLOL
     Indication: Pulmonary arterial hypertension
     Dosage: UNKNOWN

REACTIONS (1)
  - Drug ineffective [Unknown]
